FAERS Safety Report 6552176-8 (Version None)
Quarter: 2010Q1

REPORT INFORMATION
  Report Type: 
  Country: None (occurrence: None)
  Receive Date: 20100126
  Receipt Date: 20100113
  Transmission Date: 20100710
  Serious: Yes (Hospitalization)
  Sender: FDA-Public Use
  Company Number: BR-PFIZER INC-2010002147

PATIENT
  Age: 26 Year
  Sex: Male
  Weight: 68 kg

DRUGS (1)
  1. LYRICA [Suspect]
     Indication: HEADACHE
     Dosage: 150 MG, EVERY 12 HOURS
     Route: 048
     Dates: start: 20091001

REACTIONS (1)
  - NEPHROLITHIASIS [None]
